FAERS Safety Report 5013424-9 (Version None)
Quarter: 2006Q2

REPORT INFORMATION
  Report Type: 
  Country: None (occurrence: None)
  Receive Date: 20060525
  Receipt Date: 20060508
  Transmission Date: 20061013
  Serious: Yes (Other)
  Sender: FDA-Public Use
  Company Number: US200605001686

PATIENT
  Age: 61 Year
  Sex: Female

DRUGS (5)
  1. HUMULIN R [Suspect]
  2. HUMULIN N [Suspect]
  3. ILETIN [Suspect]
  4. ILETIN [Suspect]
  5. INSULIN GLARGINE (INSULIN GLARGINE) [Concomitant]

REACTIONS (2)
  - ANAPHYLACTIC REACTION [None]
  - BLOOD GLUCOSE INCREASED [None]
